FAERS Safety Report 6107700-6 (Version None)
Quarter: 2009Q1

REPORT INFORMATION
  Report Type: 
  Country: None (occurrence: None)
  Receive Date: 20090309
  Receipt Date: 20090227
  Transmission Date: 20090719
  Serious: Yes (Hospitalization)
  Sender: FDA-Public Use
  Company Number: A0713047A

PATIENT
  Age: 59 Year
  Sex: Male
  Weight: 104.5 kg

DRUGS (8)
  1. AVANDIA [Suspect]
     Indication: DIABETES MELLITUS
     Dosage: 8MG PER DAY
     Route: 048
     Dates: end: 20070701
  2. VYTORIN [Concomitant]
  3. FLOMAX [Concomitant]
  4. LISINOPRIL [Concomitant]
  5. GLUCOSAMINE [Concomitant]
  6. GLIPIZIDE [Concomitant]
  7. METFORMIN [Concomitant]
  8. GLUCOPHAGE [Concomitant]

REACTIONS (3)
  - CORONARY ARTERY DISEASE [None]
  - MYOCARDIAL INFARCTION [None]
  - MYOCARDIAL ISCHAEMIA [None]
